FAERS Safety Report 22083486 (Version 1)
Quarter: 2023Q1

REPORT INFORMATION
  Report Type: Spontaneous
  Country: US (occurrence: None)
  Receive Date: 20230309
  Receipt Date: 20230309
  Transmission Date: 20230417
  Serious: No
  Sender: FDA-Public Use
  Company Number: None

PATIENT
  Age: 14 Year
  Sex: Female

DRUGS (3)
  1. AMBRISENTAN [Suspect]
     Active Substance: AMBRISENTAN
     Indication: Pulmonary hypertension
     Dosage: FREQUENCY : DAILY;?
     Route: 048
     Dates: start: 20160616
  2. SILDENAFIL [Concomitant]
  3. TYVASO [Concomitant]

REACTIONS (5)
  - Dyspnoea [None]
  - Pyrexia [None]
  - Acute myocardial infarction [None]
  - Heavy menstrual bleeding [None]
  - Epistaxis [None]

NARRATIVE: CASE EVENT DATE: 20230225
